FAERS Safety Report 21989368 (Version 1)
Quarter: 2023Q1

REPORT INFORMATION
  Report Type: Other
  Country: CA (occurrence: CA)
  Receive Date: 20230214
  Receipt Date: 20230214
  Transmission Date: 20230418
  Serious: Yes (Other)
  Sender: FDA-Public Use
  Company Number: CA-PFIZER INC-202300061935

PATIENT

DRUGS (7)
  1. AZITHROMYCIN [Suspect]
     Active Substance: AZITHROMYCIN
     Dosage: 1 G, 1X/DAY
     Route: 064
  2. DEXTROSE [Suspect]
     Active Substance: DEXTROSE
     Route: 064
  3. AMPICILLIN [Suspect]
     Active Substance: AMPICILLIN
     Dosage: 1 G, (1 EVERY 6 HOURS)
     Route: 064
  4. ATOSIBAN [Suspect]
     Active Substance: ATOSIBAN
     Dosage: UNK
     Route: 064
  5. BETAMETHASONE [Suspect]
     Active Substance: BETAMETHASONE
     Dosage: 12 MG, 1X/DAY
     Route: 064
  6. GENTAMICIN [Suspect]
     Active Substance: GENTAMICIN
     Dosage: 80 MG, 1 EVERY 8 HOURS
     Route: 064
  7. MAGNESIUM SULFATE [Suspect]
     Active Substance: MAGNESIUM SULFATE
     Dosage: UNK
     Route: 064

REACTIONS (2)
  - Maternal exposure during pregnancy [Unknown]
  - Premature baby [Unknown]
